FAERS Safety Report 14790596 (Version 2)
Quarter: 2021Q1

REPORT INFORMATION
  Report Type: Other
  Country: US (occurrence: US)
  Receive Date: 20180423
  Receipt Date: 20210209
  Transmission Date: 20210419
  Serious: Yes (Other)
  Sender: FDA-Public Use
  Company Number: US-ROCHE-2030803

PATIENT

DRUGS (7)
  1. BUSULFAN. [Suspect]
     Active Substance: BUSULFAN
     Indication: PROPHYLAXIS AGAINST TRANSPLANT REJECTION
     Route: 065
  2. TOCILIZUMAB. [Suspect]
     Active Substance: TOCILIZUMAB
     Indication: PROPHYLAXIS AGAINST GRAFT VERSUS HOST DISEASE
     Route: 042
  3. FLUDARABINE [Suspect]
     Active Substance: FLUDARABINE PHOSPHATE
     Indication: PROPHYLAXIS AGAINST TRANSPLANT REJECTION
     Route: 065
  4. TACROLIMUS. [Suspect]
     Active Substance: TACROLIMUS
     Indication: PROPHYLAXIS AGAINST GRAFT VERSUS HOST DISEASE
     Route: 042
  5. METHOTREXATE. [Suspect]
     Active Substance: METHOTREXATE
     Indication: PROPHYLAXIS AGAINST GRAFT VERSUS HOST DISEASE
     Route: 042
  6. METHOTREXATE. [Suspect]
     Active Substance: METHOTREXATE
     Route: 042
  7. CYCLOPHOSPHAMIDE. [Suspect]
     Active Substance: CYCLOPHOSPHAMIDE
     Indication: PROPHYLAXIS AGAINST TRANSPLANT REJECTION
     Route: 065

REACTIONS (21)
  - Staphylococcal infection [Unknown]
  - Alanine aminotransferase increased [Recovered/Resolved]
  - Enterovirus infection [Unknown]
  - Bronchopulmonary aspergillosis [Unknown]
  - Human herpesvirus 6 infection [Unknown]
  - Blood bilirubin increased [Unknown]
  - Bacillus infection [Unknown]
  - Sepsis [Unknown]
  - Streptococcal infection [Unknown]
  - Urinary tract infection staphylococcal [Unknown]
  - Respiratory tract infection bacterial [Unknown]
  - Hepatotoxicity [Unknown]
  - Cytomegalovirus infection reactivation [Unknown]
  - Encephalitis [Unknown]
  - Enterococcal infection [Unknown]
  - Urinary tract infection enterococcal [Unknown]
  - Alpha haemolytic streptococcal infection [Unknown]
  - BK virus infection [Unknown]
  - Bacterial infection [Unknown]
  - Aspartate aminotransferase increased [Recovered/Resolved]
  - Clostridium difficile infection [Unknown]
